FAERS Safety Report 20192777 (Version 1)
Quarter: 2021Q4

REPORT INFORMATION
  Report Type: Spontaneous
  Country: FR (occurrence: FR)
  Receive Date: 20211216
  Receipt Date: 20211216
  Transmission Date: 20220303
  Serious: Yes (Hospitalization)
  Sender: FDA-Public Use
  Company Number: FR-VALIDUS PHARMACEUTICALS LLC-FR-VDP-2021-014749

PATIENT

DRUGS (1)
  1. FUROSEMIDE [Suspect]
     Active Substance: FUROSEMIDE
     Indication: Tachypnoea
     Dosage: 4 MG, QD (4 MG PER DAY IN 3 DOSES)
     Route: 048
     Dates: start: 20211117, end: 20211122

REACTIONS (5)
  - Weight decrease neonatal [Recovering/Resolving]
  - Hypovolaemia [Recovering/Resolving]
  - Hyponatraemia [Recovering/Resolving]
  - Product prescribing error [Unknown]
  - Incorrect dosage administered [Unknown]

NARRATIVE: CASE EVENT DATE: 20211117
